FAERS Safety Report 24212518 (Version 1)
Quarter: 2024Q3

REPORT INFORMATION
  Report Type: Spontaneous
  Country: JP (occurrence: JP)
  Receive Date: 20240815
  Receipt Date: 20240815
  Transmission Date: 20241016
  Serious: Yes (Hospitalization, Other)
  Sender: EXELIXIS
  Company Number: JP-ONO-2024JP015736

PATIENT

DRUGS (4)
  1. CABOMETYX [Suspect]
     Active Substance: CABOZANTINIB S-MALATE
     Indication: Metastatic renal cell carcinoma
     Dosage: UNK
     Route: 065
  2. CABOMETYX [Suspect]
     Active Substance: CABOZANTINIB S-MALATE
     Dosage: UNK
     Route: 065
  3. OPDIVO [Suspect]
     Active Substance: NIVOLUMAB
     Indication: Metastatic renal cell carcinoma
     Dosage: UNK
     Route: 041
  4. OPDIVO [Suspect]
     Active Substance: NIVOLUMAB
     Dosage: 3RD COURSE OF OPDIVO + CABO (DOSE UNSPECIFIED) THERAPY RESUMPTION
     Route: 041

REACTIONS (3)
  - Femoral neck fracture [Unknown]
  - Hand-foot-and-mouth disease [Recovering/Resolving]
  - Rash [Unknown]
